FAERS Safety Report 4600541-8 (Version None)
Quarter: 2005Q1

REPORT INFORMATION
  Report Type: 
  Country: None (occurrence: None)
  Receive Date: 20050304
  Receipt Date: 20050221
  Transmission Date: 20050727
  Serious: Yes (Hospitalization)
  Sender: FDA-Public Use
  Company Number: 8008923

PATIENT
  Age: 78 Year
  Sex: Male
  Weight: 71 kg

DRUGS (5)
  1. KEPPRA [Suspect]
     Indication: CONVULSION
     Dosage: 2000 MG/ D PO
     Route: 048
     Dates: start: 20041117, end: 20050121
  2. KEPPRA [Suspect]
     Indication: CONVULSION
     Dosage: 1000 MG /D PO
     Route: 048
     Dates: start: 20050101
  3. LAMOTRIGINE [Concomitant]
  4. PHENYTOIN [Concomitant]
  5. ERGENYL CHRONO [Concomitant]

REACTIONS (3)
  - CONDITION AGGRAVATED [None]
  - SOMNOLENCE [None]
  - SOPOR [None]
